FAERS Safety Report 18179224 (Version 1)
Quarter: 2020Q3

REPORT INFORMATION
  Report Type: Spontaneous
  Country: FR (occurrence: FR)
  Receive Date: 20200821
  Receipt Date: 20200821
  Transmission Date: 20201103
  Serious: Yes (Hospitalization, Other)
  Sender: FDA-Public Use
  Company Number: FR-AUROBINDO-AUR-APL-2020-039669

PATIENT
  Age: 59 Year
  Sex: Female
  Weight: 47 kg

DRUGS (2)
  1. AMOXICILLIN. [Suspect]
     Active Substance: AMOXICILLIN
     Indication: PERIODONTITIS
     Dosage: UNK
     Route: 048
     Dates: start: 202004, end: 202004
  2. METRONIDAZOLE. [Suspect]
     Active Substance: METRONIDAZOLE
     Indication: PERIODONTITIS
     Dosage: UNK
     Route: 048
     Dates: start: 202004, end: 202004

REACTIONS (2)
  - Toxic skin eruption [Recovered/Resolved]
  - Rash [Recovered/Resolved]

NARRATIVE: CASE EVENT DATE: 20200508
